FAERS Safety Report 9880616 (Version 1)
Quarter: 2014Q1

REPORT INFORMATION
  Report Type: Spontaneous
  Country: JP (occurrence: None)
  Receive Date: 20140205
  Receipt Date: 20140205
  Transmission Date: 20141002
  Serious: Yes (Hospitalization, Other)
  Sender: FDA-Public Use
  Company Number: AXC-2014-000077

PATIENT
  Age: 31 Year
  Sex: Female
  Weight: 51.2 kg

DRUGS (3)
  1. URSODEOXYCHOLIC ACID [Suspect]
     Indication: PRODUCT USED FOR UNKNOWN INDICATION
  2. DEXCHLORPHENIRAMINE MALEATE [Concomitant]
  3. FOLIC ACID [Concomitant]

REACTIONS (4)
  - Maternal exposure during pregnancy [None]
  - Alanine aminotransferase increased [None]
  - Blood bilirubin increased [None]
  - Bilirubin conjugated increased [None]
